FAERS Safety Report 4725002-7 (Version None)
Quarter: 2005Q3

REPORT INFORMATION
  Report Type: 
  Country: None (occurrence: None)
  Receive Date: 20050726
  Receipt Date: 20050705
  Transmission Date: 20060218
  Serious: Yes (Hospitalization)
  Sender: FDA-Public Use
  Company Number: JP-BRISTOL-MYERS SQUIBB COMPANY-13027917

PATIENT
  Age: 71 Year
  Sex: Male

DRUGS (4)
  1. TAXOL [Suspect]
     Indication: GASTRIC CANCER
     Route: 042
     Dates: start: 20050628, end: 20050628
  2. DECADRON [Concomitant]
     Route: 041
     Dates: start: 20050510, end: 20050628
  3. ZOFRAN [Concomitant]
     Route: 041
     Dates: start: 20050510, end: 20050610
  4. RESTAMIN [Concomitant]
     Route: 048
     Dates: start: 20050510, end: 20050610

REACTIONS (3)
  - DELIRIUM [None]
  - DEPRESSION [None]
  - SUICIDE ATTEMPT [None]
